FAERS Safety Report 14111518 (Version 1)
Quarter: 2017Q4

REPORT INFORMATION
  Report Type: Report from Study
  Country: GB (occurrence: GB)
  Receive Date: 20171020
  Receipt Date: 20171020
  Transmission Date: 20180321
  Serious: Yes (Other)
  Sender: FDA-Public Use
  Company Number: GB-UCBSA-2017041398

PATIENT
  Age: 63 Year
  Sex: Male

DRUGS (3)
  1. RASAGILINE. [Concomitant]
     Active Substance: RASAGILINE
     Indication: PRODUCT USED FOR UNKNOWN INDICATION
  2. ROTIGOTINE [Suspect]
     Active Substance: ROTIGOTINE
     Indication: PARKINSON^S DISEASE
     Dosage: UNK
  3. CARBIDOPA, LEVODOPA AND ENTACAPONE [Concomitant]
     Active Substance: CARBIDOPA\ENTACAPONE\LEVODOPA
     Indication: PRODUCT USED FOR UNKNOWN INDICATION

REACTIONS (11)
  - Weight abnormal [Unknown]
  - Nightmare [Unknown]
  - Dysphagia [Unknown]
  - Stress [Unknown]
  - Choking [Unknown]
  - Middle insomnia [Unknown]
  - Insomnia [Unknown]
  - Anxiety [Unknown]
  - Pain [Unknown]
  - Micturition urgency [Unknown]
  - Poor quality sleep [Unknown]
